FAERS Safety Report 10447339 (Version 1)
Quarter: 2014Q3

REPORT INFORMATION
  Report Type: Report from Study
  Country: LB (occurrence: LB)
  Receive Date: 20140911
  Receipt Date: 20140911
  Transmission Date: 20150326
  Serious: Yes (Hospitalization)
  Sender: FDA-Public Use
  Company Number: LB-SA-2014SA122997

PATIENT
  Age: 51 Year
  Sex: Female

DRUGS (6)
  1. LANTUS SOLOSTAR [Suspect]
     Active Substance: INSULIN GLARGINE
     Indication: DIABETES MELLITUS
     Dosage: DOSE:18 UNIT(S)
     Route: 058
     Dates: start: 201307
  2. AMARYL [Concomitant]
     Active Substance: GLIMEPIRIDE
     Indication: DIABETES MELLITUS
     Route: 048
  3. SIMVASTATIN. [Concomitant]
     Active Substance: SIMVASTATIN
     Route: 048
  4. SOLOSTAR [Concomitant]
     Active Substance: DEVICE
     Dates: start: 201307
  5. TRITACE [Concomitant]
     Active Substance: RAMIPRIL
     Route: 048
  6. ASPICOT [Concomitant]
     Active Substance: ASPIRIN
     Route: 048

REACTIONS (4)
  - Chest pain [Unknown]
  - Glycosylated haemoglobin increased [Unknown]
  - Intercepted drug prescribing error [Unknown]
  - Dyspnoea [Unknown]
